FAERS Safety Report 4605067-3 (Version None)
Quarter: 2005Q1

REPORT INFORMATION
  Report Type: 
  Country: None (occurrence: None)
  Receive Date: 20050217
  Receipt Date: 20041214
  Transmission Date: 20050727
  Serious: No
  Sender: FDA-Public Use
  Company Number: S04-USA-07862-01

PATIENT
  Age: 74 Year
  Sex: Female

DRUGS (4)
  1. NAMENDA [Suspect]
     Indication: DEMENTIA ALZHEIMER'S TYPE
     Dosage: 5 MG QD PO
     Route: 048
     Dates: start: 20041214
  2. ARICEPT [Concomitant]
  3. ZOLOFT [Concomitant]
  4. CELEBREX [Concomitant]

REACTIONS (2)
  - ACCIDENTAL OVERDOSE [None]
  - LETHARGY [None]
